FAERS Safety Report 17727725 (Version 1)
Quarter: 2020Q2

REPORT INFORMATION
  Report Type: Spontaneous
  Country: US (occurrence: US)
  Receive Date: 20200430
  Receipt Date: 20200430
  Transmission Date: 20200714
  Serious: Yes (Other)
  Sender: FDA-Public Use
  Company Number: US-ROCHE-2590723

PATIENT
  Sex: Female

DRUGS (29)
  1. AMANTADINE. [Concomitant]
     Active Substance: AMANTADINE HYDROCHLORIDE
  2. BACLOFEN. [Concomitant]
     Active Substance: BACLOFEN
  3. POLYETHYLENE GLYCOL [Concomitant]
     Active Substance: POLYETHYLENE GLYCOLS
  4. BIOTIN [Concomitant]
     Active Substance: BIOTIN
  5. CARVEDILOL. [Concomitant]
     Active Substance: CARVEDILOL
  6. ESOMEPRAZOLE MAGNESIUM. [Concomitant]
     Active Substance: ESOMEPRAZOLE MAGNESIUM
  7. CELECOXIB. [Concomitant]
     Active Substance: CELECOXIB
  8. ENTECAVIR. [Concomitant]
     Active Substance: ENTECAVIR
  9. PREDNISOLONE. [Concomitant]
     Active Substance: PREDNISOLONE
  10. PREDNISONE. [Concomitant]
     Active Substance: PREDNISONE
  11. VIT D [Concomitant]
     Active Substance: VITAMIN D NOS
  12. ALPRAZOLAM. [Concomitant]
     Active Substance: ALPRAZOLAM
  13. LEVOTHYROXINE. [Concomitant]
     Active Substance: LEVOTHYROXINE
  14. PRAMIPEXOLE. [Concomitant]
     Active Substance: PRAMIPEXOLE
  15. AMOXICILLIN;CLAVULANIC ACID [Concomitant]
     Active Substance: AMOXICILLIN\CLAVULANIC ACID
  16. MIRTAZAPINE. [Concomitant]
     Active Substance: MIRTAZAPINE
  17. OXYCODONE AND ACETAMINOPHEN [Concomitant]
     Active Substance: ACETAMINOPHEN\OXYCODONE HYDROCHLORIDE
  18. GABAPENTIN. [Concomitant]
     Active Substance: GABAPENTIN
  19. MELATONIN [Concomitant]
     Active Substance: MELATONIN
  20. ESBRIET [Suspect]
     Active Substance: PIRFENIDONE
     Indication: IDIOPATHIC PULMONARY FIBROSIS
     Route: 048
     Dates: start: 20200110
  21. AMLODIPINE [Concomitant]
     Active Substance: AMLODIPINE BESYLATE
  22. FLUTICASONE. [Concomitant]
     Active Substance: FLUTICASONE
  23. FUROSEMIDE. [Concomitant]
     Active Substance: FUROSEMIDE
  24. IPRATROPIUM [Concomitant]
     Active Substance: IPRATROPIUM
  25. METHOCARBAMOL. [Concomitant]
     Active Substance: METHOCARBAMOL
  26. CETRIZINE [Concomitant]
     Active Substance: CETIRIZINE HYDROCHLORIDE
  27. METOPROLOL SUCCINATE. [Concomitant]
     Active Substance: METOPROLOL SUCCINATE
  28. OMEPRAZOLE. [Concomitant]
     Active Substance: OMEPRAZOLE
  29. ONDANSETRON [Concomitant]
     Active Substance: ONDANSETRON

REACTIONS (1)
  - Lymphoma [Unknown]
